FAERS Safety Report 9818411 (Version 1)
Quarter: 2014Q1

REPORT INFORMATION
  Report Type: Spontaneous
  Country: US (occurrence: None)
  Receive Date: 20140113
  Receipt Date: 20140113
  Transmission Date: 20141002
  Serious: Yes (Hospitalization)
  Sender: FDA-Public Use
  Company Number: None

PATIENT
  Age: 75 Year
  Sex: Male
  Weight: 47.3 kg

DRUGS (1)
  1. DIGOXIN [Suspect]
     Route: 048
     Dates: start: 20130402, end: 20130828

REACTIONS (7)
  - Bradycardia [None]
  - Atrioventricular block [None]
  - Toxicity to various agents [None]
  - Cardioactive drug level increased [None]
  - Dizziness [None]
  - Condition aggravated [None]
  - Electrocardiogram PR prolongation [None]
